FAERS Safety Report 17425148 (Version 1)
Quarter: 2020Q1

REPORT INFORMATION
  Report Type: Spontaneous
  Country: GB (occurrence: GB)
  Receive Date: 20200218
  Receipt Date: 20200218
  Transmission Date: 20200409
  Serious: Yes (Hospitalization, Other)
  Sender: FDA-Public Use
  Company Number: GB-AUROBINDO-AUR-APL-2020-007806

PATIENT
  Age: 70 Year
  Sex: Female

DRUGS (5)
  1. OLANZAPINE. [Suspect]
     Active Substance: OLANZAPINE
     Indication: PRODUCT USED FOR UNKNOWN INDICATION
     Dosage: UNK
     Route: 065
     Dates: start: 201808
  2. SALBUTAMOL [Suspect]
     Active Substance: ALBUTEROL
     Indication: PRODUCT USED FOR UNKNOWN INDICATION
     Dosage: UNK
     Route: 065
  3. QUETIAPINE. [Suspect]
     Active Substance: QUETIAPINE
     Indication: PRODUCT USED FOR UNKNOWN INDICATION
     Dosage: 50 MILLIGRAM
     Route: 065
  4. CLOPIXOL [Suspect]
     Active Substance: ZUCLOPENTHIXOL
     Indication: PRODUCT USED FOR UNKNOWN INDICATION
     Dosage: 50 MILLIGRAM, 2 WEEK
     Route: 065
  5. CLOPIXOL [Suspect]
     Active Substance: ZUCLOPENTHIXOL
     Dosage: 40 MILLIGRAM
     Route: 065
     Dates: end: 201902

REACTIONS (15)
  - Burning sensation [Unknown]
  - Brain injury [Unknown]
  - Hypersensitivity [Unknown]
  - Libido decreased [Unknown]
  - Chronic obstructive pulmonary disease [Unknown]
  - Multiple allergies [Unknown]
  - Food allergy [Unknown]
  - Myalgia [Unknown]
  - Autoimmune disorder [Unknown]
  - Breast enlargement [Unknown]
  - Dyspnoea [Unknown]
  - Emotional distress [Unknown]
  - Feeling of body temperature change [Unknown]
  - Product administered to patient of inappropriate age [Unknown]
  - Insomnia [Unknown]

NARRATIVE: CASE EVENT DATE: 201907
